FAERS Safety Report 6701535-9 (Version None)
Quarter: 2010Q2

REPORT INFORMATION
  Report Type: 
  Country: None (occurrence: None)
  Receive Date: 20100429
  Receipt Date: 20100422
  Transmission Date: 20101027
  Serious: Yes (Hospitalization)
  Sender: FDA-Public Use
  Company Number: BR-TYCO HEALTHCARE/MALLINCKRODT-T201000851

PATIENT

DRUGS (1)
  1. CONRAY [Suspect]
     Indication: COMPUTERISED TOMOGRAM
     Dosage: 40 ML, SINGLE
     Route: 042
     Dates: start: 20100311, end: 20100311

REACTIONS (1)
  - LARYNGEAL OEDEMA [None]
